FAERS Safety Report 8113526-4 (Version None)
Quarter: 2012Q1

REPORT INFORMATION
  Report Type: 
  Country: None (occurrence: None)
  Receive Date: 20120203
  Receipt Date: 20120127
  Transmission Date: 20120608
  Serious: Yes (Other)
  Sender: FDA-Public Use
  Company Number: US-ELI_LILLY_AND_COMPANY-US201201009336

PATIENT
  Sex: Female

DRUGS (3)
  1. LANTUS [Concomitant]
     Indication: DIABETES MELLITUS
     Dosage: UNK, EACH EVENING
  2. HUMALOG [Suspect]
     Indication: DIABETES MELLITUS
     Dosage: UNK, PRN
  3. HUMALOG [Suspect]
     Dosage: UNK, PRN

REACTIONS (2)
  - INCORRECT DOSE ADMINISTERED [None]
  - RETINAL DISORDER [None]
